FAERS Safety Report 15823704 (Version 1)
Quarter: 2019Q1

REPORT INFORMATION
  Report Type: Spontaneous
  Country: US (occurrence: US)
  Receive Date: 20190114
  Receipt Date: 20190114
  Transmission Date: 20190417
  Serious: No
  Sender: FDA-Public Use
  Company Number: US-PFIZER INC-2019016536

PATIENT
  Age: 60 Year
  Sex: Male

DRUGS (1)
  1. TOFACITINIB CITRATE [Suspect]
     Active Substance: TOFACITINIB CITRATE
     Dosage: UNK

REACTIONS (5)
  - Myalgia [Unknown]
  - Arthralgia [Unknown]
  - Cough [Recovering/Resolving]
  - Infection [Not Recovered/Not Resolved]
  - Productive cough [Not Recovered/Not Resolved]
